FAERS Safety Report 18477203 (Version 17)
Quarter: 2023Q2

REPORT INFORMATION
  Report Type: Report from Study
  Country: US (occurrence: US)
  Receive Date: 20201107
  Receipt Date: 20230614
  Transmission Date: 20230722
  Serious: Yes (Hospitalization, Other)
  Sender: FDA-Public Use
  Company Number: US-SHIRE-US202027190

PATIENT
  Age: 59 Year
  Sex: Female
  Weight: 45.8 kg

DRUGS (60)
  1. HUMAN IMMUNOGLOBULIN G [Suspect]
     Active Substance: HUMAN IMMUNOGLOBULIN G
     Indication: Immunodeficiency common variable
     Dosage: 5 GRAM, 2/WEEK
     Route: 058
     Dates: start: 20200413
  2. HUMAN IMMUNOGLOBULIN G [Suspect]
     Active Substance: HUMAN IMMUNOGLOBULIN G
     Indication: Asthma
     Dosage: 7.5 GRAM, 1/WEEK
     Route: 058
     Dates: start: 20211211
  3. HUMAN IMMUNOGLOBULIN G [Suspect]
     Active Substance: HUMAN IMMUNOGLOBULIN G
     Indication: Selective IgG subclass deficiency
     Dosage: 7.5 GRAM, 1/WEEK
     Route: 058
     Dates: start: 20211216
  4. GAMMAGARD LIQUID [Suspect]
     Active Substance: HUMAN IMMUNOGLOBULIN G
     Indication: Selective IgG subclass deficiency
     Dosage: 7.5 GRAM, 1/WEEK
     Route: 058
     Dates: start: 20211211
  5. GAMMAGARD LIQUID [Suspect]
     Active Substance: HUMAN IMMUNOGLOBULIN G
     Indication: Immunodeficiency common variable
     Dosage: 2.5 GRAM, 1/WEEK
     Route: 042
     Dates: start: 202204
  6. GAMMAGARD LIQUID [Suspect]
     Active Substance: HUMAN IMMUNOGLOBULIN G
     Indication: Asthma
  7. GAMMAGARD LIQUID [Suspect]
     Active Substance: HUMAN IMMUNOGLOBULIN G
     Indication: Primary immunodeficiency syndrome
  8. COVID-19 VACCINE NOS [Suspect]
     Active Substance: COVID-19 VACCINE NOS
     Indication: COVID-19 immunisation
     Dosage: UNK
     Route: 065
  9. DIPHENHYDRAMINE [Concomitant]
     Active Substance: DIPHENHYDRAMINE
  10. PROMETHAZINE HYDROCHLORIDE [Concomitant]
     Active Substance: PROMETHAZINE HYDROCHLORIDE
  11. EPINEPHRINE [Concomitant]
     Active Substance: EPINEPHRINE
  12. PREDNISONE [Concomitant]
     Active Substance: PREDNISONE
  13. OFLOXACIN [Concomitant]
     Active Substance: OFLOXACIN
  14. METHYL SALICYLATE [Concomitant]
     Active Substance: METHYL SALICYLATE
  15. XOPENEX HFA [Concomitant]
     Active Substance: LEVALBUTEROL TARTRATE
  16. DULERA [Concomitant]
     Active Substance: FORMOTEROL FUMARATE DIHYDRATE\MOMETASONE FUROATE
  17. PANTOPRAZOLE SODIUM [Concomitant]
     Active Substance: PANTOPRAZOLE SODIUM
  18. LEVALBUTEROL HYDROCHLORIDE [Concomitant]
     Active Substance: LEVALBUTEROL HYDROCHLORIDE
  19. TRAZODONE HCL [Concomitant]
     Active Substance: TRAZODONE HYDROCHLORIDE
  20. ATORVASTATIN CALCIUM [Concomitant]
     Active Substance: ATORVASTATIN CALCIUM
  21. FLONASE [Concomitant]
     Active Substance: FLUTICASONE PROPIONATE
  22. DICYCLOMINE HYDROCHLORIDE [Concomitant]
     Active Substance: DICYCLOMINE HYDROCHLORIDE
  23. FASENRA [Concomitant]
     Active Substance: BENRALIZUMAB
  24. MONTELUKAST SODIUM [Concomitant]
     Active Substance: MONTELUKAST SODIUM
  25. PROBIOTIC [BIFIDOBACTERIUM BIFIDUM;BIFIDOBACTERIUM LACTIS;BIFIDOBACTER [Concomitant]
  26. SUMATRIPTAN SUCCINATE [Concomitant]
     Active Substance: SUMATRIPTAN SUCCINATE
  27. CELECOXIB [Concomitant]
     Active Substance: CELECOXIB
  28. BENADRYL [Concomitant]
     Active Substance: DIPHENHYDRAMINE HYDROCHLORIDE
  29. PANTOPRAZOLE SODIUM [Concomitant]
     Active Substance: PANTOPRAZOLE SODIUM
  30. CALCIUM [Concomitant]
     Active Substance: CALCIUM
  31. MONTELUKAST SODIUM [Concomitant]
     Active Substance: MONTELUKAST SODIUM
  32. EPIPEN [Concomitant]
     Active Substance: EPINEPHRINE
  33. SUMATRIPTAN SUCCINATE [Concomitant]
     Active Substance: SUMATRIPTAN SUCCINATE
  34. ACETAMINOPHEN [Concomitant]
     Active Substance: ACETAMINOPHEN
  35. Lmx [Concomitant]
  36. TOPIRAMATE [Concomitant]
     Active Substance: TOPIRAMATE
     Dosage: UNK
  37. ONDANSETRON HYDROCHLORIDE [Concomitant]
     Active Substance: ONDANSETRON HYDROCHLORIDE
  38. SCOPOLAMINE [Concomitant]
     Active Substance: SCOPOLAMINE
  39. FAMOTIDINE [Concomitant]
     Active Substance: FAMOTIDINE
  40. SUCRALFATE [Concomitant]
     Active Substance: SUCRALFATE
     Dosage: UNK
  41. PROMETHAZINE [Concomitant]
     Active Substance: PROMETHAZINE HYDROCHLORIDE
  42. LEVALBUTEROL TARTRATE [Concomitant]
     Active Substance: LEVALBUTEROL TARTRATE
  43. TRAZODONE [Concomitant]
     Active Substance: TRAZODONE HYDROCHLORIDE
  44. ATORVASTATIN [Concomitant]
     Active Substance: ATORVASTATIN
  45. DICYCLOMINE HYDROCHLORIDE [Concomitant]
     Active Substance: DICYCLOMINE HYDROCHLORIDE
  46. PROBIOTIC BLEND [Concomitant]
  47. Benadryl itch stopping cream [Concomitant]
  48. BENADRYL [Concomitant]
     Active Substance: DIPHENHYDRAMINE HYDROCHLORIDE
  49. PANTOPRAZOLE [Concomitant]
     Active Substance: PANTOPRAZOLE
  50. MONTELUKAST [Concomitant]
     Active Substance: MONTELUKAST SODIUM
  51. SUMATRIPTAN [Concomitant]
     Active Substance: SUMATRIPTAN
  52. LEVALBUTEROL HYDROCHLORIDE [Concomitant]
     Active Substance: LEVALBUTEROL HYDROCHLORIDE
  53. FLUTICASONE PROPIONATE [Concomitant]
     Active Substance: FLUTICASONE PROPIONATE
  54. VITAMIN D [Concomitant]
     Active Substance: VITAMIN D NOS
  55. VITAMIN B [Concomitant]
     Active Substance: VITAMIN B
  56. PHILLIPS COLON HEALTH [Concomitant]
  57. PEPCID [Concomitant]
     Active Substance: FAMOTIDINE
  58. SOLU-CORTEF [Concomitant]
     Active Substance: HYDROCORTISONE SODIUM SUCCINATE
  59. TUMS [Concomitant]
     Active Substance: CALCIUM CARBONATE
  60. PEPTO-BISMOL [Concomitant]
     Active Substance: BISMUTH SUBSALICYLATE

REACTIONS (40)
  - Addison^s disease [Unknown]
  - Dehydration [Unknown]
  - Cellulitis [Unknown]
  - Vomiting [Unknown]
  - Malaise [Unknown]
  - Neoplasm malignant [Unknown]
  - Renal failure [Unknown]
  - Gastric ulcer [Unknown]
  - Pneumonia [Unknown]
  - Adrenocortical insufficiency acute [Unknown]
  - Sinusitis [Unknown]
  - Ear infection [Unknown]
  - Infusion site rash [Unknown]
  - Infusion site vesicles [Unknown]
  - Renal disorder [Not Recovered/Not Resolved]
  - Seasonal allergy [Unknown]
  - Arthropod bite [Unknown]
  - Weight decreased [Unknown]
  - Gastrointestinal disorder [Unknown]
  - Skin infection [Unknown]
  - Rib fracture [Unknown]
  - Infection [Unknown]
  - Eyelid ptosis [Unknown]
  - Blood test abnormal [Unknown]
  - Wheezing [Unknown]
  - Visual impairment [Unknown]
  - Infusion site swelling [Unknown]
  - Infusion site pruritus [Unknown]
  - Influenza like illness [Unknown]
  - Infusion site pain [Unknown]
  - Infusion site urticaria [Unknown]
  - Migraine [Unknown]
  - Nausea [Recovered/Resolved]
  - Diarrhoea [Unknown]
  - Pyrexia [Unknown]
  - Product dose omission issue [Unknown]
  - Expired product administered [Unknown]
  - Product storage error [Unknown]
  - Liquid product physical issue [Unknown]
  - Inappropriate schedule of product administration [Unknown]

NARRATIVE: CASE EVENT DATE: 20200708
